FAERS Safety Report 6017901-3 (Version None)
Quarter: 2008Q4

REPORT INFORMATION
  Report Type: 
  Country: None (occurrence: None)
  Receive Date: 20081223
  Receipt Date: 20081215
  Transmission Date: 20090506
  Serious: Yes (Other)
  Sender: FDA-Public Use
  Company Number: ES-NOVOPROD-265765

PATIENT
  Age: 77 Year
  Sex: Female
  Weight: 70 kg

DRUGS (2)
  1. PRANDIN [Suspect]
     Indication: TYPE 2 DIABETES MELLITUS
     Dosage: 6 MG, QD
     Route: 048
     Dates: start: 20060501, end: 20070501
  2. METFORMIN HCL [Concomitant]
     Indication: TYPE 2 DIABETES MELLITUS
     Dosage: 1.7 G, QD
     Route: 048

REACTIONS (1)
  - HEPATITIS CHOLESTATIC [None]
